FAERS Safety Report 5682419-4 (Version None)
Quarter: 2008Q1

REPORT INFORMATION
  Report Type: 
  Country: None (occurrence: None)
  Receive Date: 20080327
  Receipt Date: 20070612
  Transmission Date: 20080703
  Serious: No
  Sender: FDA-Public Use
  Company Number: US-BAUSCH-2007BL001943

PATIENT
  Age: 75 Year
  Sex: Female
  Weight: 68 kg

DRUGS (3)
  1. ALBUTEROL SULFATE [Suspect]
     Route: 049
     Dates: start: 19830815
  2. SINGULAIR [Suspect]
     Route: 048
     Dates: start: 20070303, end: 20070331
  3. HYDROXYZINE [Concomitant]
     Indication: ANXIETY
     Route: 048
     Dates: start: 20030101

REACTIONS (7)
  - ABDOMINAL PAIN UPPER [None]
  - DIARRHOEA [None]
  - DYSPEPSIA [None]
  - ECZEMA [None]
  - FLATULENCE [None]
  - HEADACHE [None]
  - NASOPHARYNGITIS [None]
